FAERS Safety Report 19030072 (Version 1)
Quarter: 2021Q1

REPORT INFORMATION
  Report Type: Spontaneous
  Country: JP (occurrence: JP)
  Receive Date: 20210319
  Receipt Date: 20210319
  Transmission Date: 20210420
  Serious: Yes (Hospitalization)
  Sender: FDA-Public Use
  Company Number: JP-TEVA-2021-JP-1890674

PATIENT
  Age: 46 Year
  Sex: Female

DRUGS (7)
  1. TACROLIMUS. [Suspect]
     Active Substance: TACROLIMUS
     Indication: INTERSTITIAL LUNG DISEASE
     Dosage: 4 MILLIGRAM DAILY; AS A PART OF TRIPLE THERAPY
     Route: 065
     Dates: start: 2020, end: 2020
  2. NAFAMOSTAT [Suspect]
     Active Substance: NAFAMOSTAT
     Indication: COVID-19 PNEUMONIA
     Route: 065
     Dates: start: 202005, end: 202005
  3. CYCLOPHOSPHAMIDE. [Suspect]
     Active Substance: CYCLOPHOSPHAMIDE
     Indication: INTERSTITIAL LUNG DISEASE
     Dosage: RECEIVED 4 CYCLES AS A PART OF TRIPLE THERAPY; PULSE DOSES
     Route: 042
     Dates: start: 2020, end: 2020
  4. CICLESONIDE [Suspect]
     Active Substance: CICLESONIDE
     Indication: COVID-19 PNEUMONIA
     Route: 055
     Dates: start: 202005, end: 202005
  5. METHYLPREDNISOLONE. [Suspect]
     Active Substance: METHYLPREDNISOLONE
     Indication: INTERSTITIAL LUNG DISEASE
     Dosage: 500 MILLIGRAM DAILY; REMISSION INDUCTION THERAPY; PULSE DOSES
     Route: 065
     Dates: start: 2020, end: 2020
  6. PREDNISOLONE. [Suspect]
     Active Substance: PREDNISOLONE
     Indication: INTERSTITIAL LUNG DISEASE
     Dosage: 50 MILLIGRAM DAILY; AS A PART OF TRIPLE THERAPY
     Route: 065
     Dates: start: 2020, end: 2020
  7. FAVIPIRAVIR [Suspect]
     Active Substance: FAVIPIRAVIR
     Indication: COVID-19 PNEUMONIA
     Route: 065
     Dates: start: 202005, end: 202005

REACTIONS (3)
  - COVID-19 pneumonia [Recovered/Resolved]
  - Viral load increased [Recovered/Resolved]
  - Off label use [Unknown]

NARRATIVE: CASE EVENT DATE: 2020
